FAERS Safety Report 25316841 (Version 1)
Quarter: 2025Q2

REPORT INFORMATION
  Report Type: Spontaneous
  Country: US (occurrence: US)
  Receive Date: 20250515
  Receipt Date: 20250515
  Transmission Date: 20250716
  Serious: Yes (Hospitalization, Other)
  Sender: AUROBINDO
  Company Number: US-AUROBINDO-AUR-APL-2025-024054

PATIENT
  Age: 54 Year
  Sex: Female

DRUGS (3)
  1. PANTOPRAZOLE [Suspect]
     Active Substance: PANTOPRAZOLE
     Indication: Necrotising oesophagitis
     Dosage: 40 MILLIGRAM, TWO TIMES A DAY
     Route: 042
  2. SUCRALFATE [Concomitant]
     Active Substance: SUCRALFATE
     Indication: Necrotising oesophagitis
     Route: 065
  3. INSULIN NOS [Concomitant]
     Active Substance: INSULIN NOS
     Indication: Diabetic ketoacidosis
     Route: 065

REACTIONS (1)
  - Drug ineffective [Unknown]
